FAERS Safety Report 4387702-0 (Version None)
Quarter: 2004Q2

REPORT INFORMATION
  Report Type: 
  Country: None (occurrence: None)
  Receive Date: 20040630
  Receipt Date: 20040622
  Transmission Date: 20050107
  Serious: Yes (Hospitalization)
  Sender: FDA-Public Use
  Company Number: JP-MERCK-0406USA02269

PATIENT
  Age: 56 Year
  Sex: Male

DRUGS (5)
  1. BLOPRESS [Concomitant]
     Route: 048
     Dates: end: 20040615
  2. PERSANTIN INJ [Concomitant]
     Route: 048
     Dates: end: 20040617
  3. RYTHMODAN [Concomitant]
     Route: 048
     Dates: end: 20040615
  4. PEPCID RPD [Suspect]
     Route: 048
     Dates: end: 20040615
  5. WARFARIN [Concomitant]
     Route: 048
     Dates: end: 20040615

REACTIONS (1)
  - HEPATITIS [None]
